FAERS Safety Report 7163612-0 (Version None)
Quarter: 2010Q4

REPORT INFORMATION
  Report Type: 
  Country: None (occurrence: None)
  Receive Date: 20101215
  Receipt Date: 20100518
  Transmission Date: 20110411
  Serious: Yes (Other)
  Sender: FDA-Public Use
  Company Number: BR-PFIZER INC-2010062078

PATIENT
  Age: 45 Year
  Sex: Female
  Weight: 63 kg

DRUGS (2)
  1. LYRICA [Suspect]
     Indication: FIBROMYALGIA
     Dosage: 150 MG, 1X/DAY
     Route: 048
     Dates: start: 20100511
  2. LYRICA [Suspect]
     Indication: NEURALGIA

REACTIONS (8)
  - ABNORMAL DREAMS [None]
  - AGITATION [None]
  - FORMICATION [None]
  - IMPATIENCE [None]
  - INSOMNIA [None]
  - POOR QUALITY SLEEP [None]
  - SCREAMING [None]
  - TREMOR [None]
